FAERS Safety Report 12733984 (Version 1)
Quarter: 2016Q3

REPORT INFORMATION
  Report Type: Spontaneous
  Country: US (occurrence: US)
  Receive Date: 20160912
  Receipt Date: 20160912
  Transmission Date: 20161109
  Serious: No
  Sender: FDA-Public Use
  Company Number: US-ASTRAZENECA-2016SE94351

PATIENT
  Age: 48 Year
  Sex: Female

DRUGS (9)
  1. BENADRYL [Concomitant]
     Active Substance: DIPHENHYDRAMINE HYDROCHLORIDE
  2. BYDUREON [Suspect]
     Active Substance: EXENATIDE
     Indication: TYPE 2 DIABETES MELLITUS
     Route: 058
     Dates: start: 20150714
  3. GABAPENTIN. [Concomitant]
     Active Substance: GABAPENTIN
     Indication: PAIN
     Dosage: 200 MG THREE TIMES A DAY
     Dates: start: 2010
  4. METFORMIN [Concomitant]
     Active Substance: METFORMIN HYDROCHLORIDE
     Indication: BLOOD GLUCOSE ABNORMAL
     Dosage: 750 MG TWO TIMES A DAY
     Dates: start: 2000
  5. GLIPIZIDE. [Concomitant]
     Active Substance: GLIPIZIDE
     Indication: BLOOD GLUCOSE ABNORMAL
  6. HUMALOG [Concomitant]
     Active Substance: INSULIN LISPRO
     Indication: BLOOD GLUCOSE ABNORMAL
  7. PAROXETINE. [Concomitant]
     Active Substance: PAROXETINE
     Indication: BIPOLAR I DISORDER
  8. LISINOPRIL. [Suspect]
     Active Substance: LISINOPRIL
     Indication: BLOOD PRESSURE ABNORMAL
     Route: 048
     Dates: start: 1997
  9. XANAX [Concomitant]
     Active Substance: ALPRAZOLAM
     Indication: ANXIETY

REACTIONS (18)
  - Injection site haemorrhage [Not Recovered/Not Resolved]
  - Swelling face [Unknown]
  - Swollen tongue [Unknown]
  - Dizziness [Unknown]
  - Nausea [Unknown]
  - Insomnia [Unknown]
  - Pharyngeal oedema [Unknown]
  - Dysphonia [Unknown]
  - Injection site mass [Not Recovered/Not Resolved]
  - Major depression [Unknown]
  - Conversion disorder [Unknown]
  - Product quality issue [Unknown]
  - Peripheral swelling [Unknown]
  - Asthenia [Unknown]
  - Pruritus generalised [Not Recovered/Not Resolved]
  - Constipation [Not Recovered/Not Resolved]
  - Malaise [Unknown]
  - Headache [Unknown]

NARRATIVE: CASE EVENT DATE: 2000
